FAERS Safety Report 14932927 (Version 3)
Quarter: 2018Q3

REPORT INFORMATION
  Report Type: Spontaneous
  Country: US (occurrence: US)
  Receive Date: 20180524
  Receipt Date: 20180830
  Transmission Date: 20181010
  Serious: Yes (Hospitalization)
  Sender: FDA-Public Use
  Company Number: US-PFIZER INC-2016239213

PATIENT
  Age: 89 Year
  Sex: Female
  Weight: 50 kg

DRUGS (8)
  1. XELJANZ [Suspect]
     Active Substance: TOFACITINIB CITRATE
     Indication: RHEUMATOID ARTHRITIS
     Dosage: 5 MG, 1X/DAY
     Route: 048
     Dates: start: 2013
  2. TRAMADOL. [Concomitant]
     Active Substance: TRAMADOL
     Indication: PAIN
     Dosage: 25 MG, AS NEEDED (3 TIMES DAILY)
     Route: 048
     Dates: start: 2005, end: 201801
  3. HYDROCODONE [Concomitant]
     Active Substance: HYDROCODONE
     Indication: PAIN
     Dosage: 1 DF, AS NEEDED (AT NIGHT)
     Dates: start: 2005, end: 201801
  4. XELJANZ [Suspect]
     Active Substance: TOFACITINIB CITRATE
     Indication: INFLAMMATION
  5. XELJANZ [Suspect]
     Active Substance: TOFACITINIB CITRATE
     Indication: PAIN
  6. HYDROCODONE [Concomitant]
     Active Substance: HYDROCODONE
     Indication: SLEEP DISORDER
  7. ATENOLOL. [Concomitant]
     Active Substance: ATENOLOL
     Indication: HYPERTENSION
     Dosage: UNK
     Dates: start: 2016
  8. METOPROLOL. [Concomitant]
     Active Substance: METOPROLOL
     Indication: HYPERTENSION
     Dosage: UNK
     Dates: start: 2017, end: 201801

REACTIONS (2)
  - Anxiety [Recovering/Resolving]
  - Labile blood pressure [Recovering/Resolving]

NARRATIVE: CASE EVENT DATE: 2015
